FAERS Safety Report 4896018-5 (Version None)
Quarter: 2005Q4

REPORT INFORMATION
  Report Type: 
  Country: None (occurrence: None)
  Receive Date: 20051220
  Receipt Date: 20050308
  Transmission Date: 20060501
  Serious: Yes (Hospitalization)
  Sender: FDA-Public Use
  Company Number: 398118

PATIENT
  Sex: Female

DRUGS (1)
  1. TAMIFLU [Suspect]
     Dosage: ORAL
     Route: 048

REACTIONS (3)
  - EYE DISORDER [None]
  - INSOMNIA [None]
  - PNEUMONIA [None]
